FAERS Safety Report 6026280-7 (Version None)
Quarter: 2008Q4

REPORT INFORMATION
  Report Type: 
  Country: None (occurrence: None)
  Receive Date: 20081230
  Receipt Date: 20081215
  Transmission Date: 20090506
  Serious: Yes (Life-Threatening)
  Sender: FDA-Public Use
  Company Number: GXKR2008IT11969

PATIENT
  Age: 67 Year
  Sex: Male

DRUGS (7)
  1. SOTALOL HCL [Suspect]
     Indication: ATRIAL FLUTTER
     Dosage: 40 MG, TID
  2. METHYLPREDNISOLONE 16MG TAB [Concomitant]
  3. ENALAPRIL MALEATE [Concomitant]
  4. POTASSIUM CANRENOATE (POTASSIUE CANRENOATE) [Concomitant]
  5. BUTIZIDE (BUTIZIDE) [Concomitant]
  6. PHENYTOIN [Concomitant]
  7. LAMOTRIGINE [Concomitant]

REACTIONS (6)
  - BRUGADA SYNDROME [None]
  - BUNDLE BRANCH BLOCK RIGHT [None]
  - SUPRAVENTRICULAR EXTRASYSTOLES [None]
  - SUPRAVENTRICULAR TACHYCARDIA [None]
  - VENTRICULAR EXTRASYSTOLES [None]
  - VENTRICULAR FIBRILLATION [None]
